FAERS Safety Report 17943739 (Version 1)
Quarter: 2020Q2

REPORT INFORMATION
  Report Type: Report from Study
  Country: FR (occurrence: FR)
  Receive Date: 20200625
  Receipt Date: 20200625
  Transmission Date: 20200714
  Serious: Yes (Other)
  Sender: FDA-Public Use
  Company Number: FR-BRISTOL-MYERS SQUIBB COMPANY-BMS-2019-006475

PATIENT
  Age: 86 Year
  Sex: Male
  Weight: 64 kg

DRUGS (11)
  1. ASPEGIC [ACETYLSALICYLIC ACID] [Suspect]
     Active Substance: ASPIRIN
     Indication: PRODUCT USED FOR UNKNOWN INDICATION
     Dosage: 100 MILLIGRAM, DAILY DOSAGE
     Route: 048
     Dates: start: 20171008
  2. IPERTEN [Concomitant]
     Active Substance: MANIDIPINE
     Indication: BLOOD PRESSURE INCREASED
     Dosage: 20 MILLIGRAM, DAILY DOSAGE
     Route: 048
     Dates: start: 20171006
  3. HYDROCHLOROTHIAZIDE. [Concomitant]
     Active Substance: HYDROCHLOROTHIAZIDE
     Indication: POLYURIA
     Dosage: 12.5 MILLIGRAM, DAILY DOSAGE
     Route: 048
  4. INEXIUM [ESOMEPRAZOLE MAGNESIUM] [Suspect]
     Active Substance: ESOMEPRAZOLE MAGNESIUM
     Indication: PRODUCT USED FOR UNKNOWN INDICATION
     Dosage: 40 MILLIGRAM, DAILY DOSAGE
     Route: 048
     Dates: start: 20171006
  5. PLAVIX [Suspect]
     Active Substance: CLOPIDOGREL BISULFATE
     Indication: PRODUCT USED FOR UNKNOWN INDICATION
     Dosage: 75 MILLIGRAM, DAILY DOSAGE
     Route: 048
     Dates: start: 20071001
  6. APIXABAN [Suspect]
     Active Substance: APIXABAN
     Indication: PRODUCT USED FOR UNKNOWN INDICATION
     Dosage: UNK
     Route: 065
  7. ELIQUIS [Suspect]
     Active Substance: APIXABAN
     Indication: PRODUCT USED FOR UNKNOWN INDICATION
     Dosage: 5 MILLIGRAM, DAILY DOSAGE
     Route: 048
     Dates: start: 20180303, end: 20190207
  8. APROVEL [Concomitant]
     Active Substance: IRBESARTAN
     Indication: BLOOD PRESSURE INCREASED
     Dosage: 150 MILLIGRAM, DAILY DOSAGE
     Route: 048
  9. FLUVASTATINE [FLUVASTATIN] [Concomitant]
     Indication: DYSLIPIDAEMIA
     Dosage: 40 MILLIGRAM, DAILY DOSAGE
     Route: 048
  10. EUPRESSYL [URAPIDIL] [Concomitant]
     Active Substance: URAPIDIL
     Indication: BLOOD PRESSURE INCREASED
     Dosage: 60 MILLIGRAM, DAILY DOSAGE
     Route: 048
  11. SPIRIVA [Concomitant]
     Active Substance: TIOTROPIUM BROMIDE MONOHYDRATE
     Indication: CHRONIC OBSTRUCTIVE PULMONARY DISEASE
     Dosage: UNK
     Route: 050

REACTIONS (2)
  - Wound haematoma [Recovered/Resolved]
  - Fall [Recovered/Resolved]

NARRATIVE: CASE EVENT DATE: 20181008
